FAERS Safety Report 6173639-3 (Version None)
Quarter: 2009Q2

REPORT INFORMATION
  Report Type: 
  Country: None (occurrence: None)
  Receive Date: 20090430
  Receipt Date: 20090421
  Transmission Date: 20091009
  Serious: Yes (Other)
  Sender: FDA-Public Use
  Company Number: GB-MERCK-0904GBR00075

PATIENT
  Age: 85 Year
  Sex: Male
  Weight: 70 kg

DRUGS (12)
  1. ZOCOR [Suspect]
     Indication: CEREBRAL ISCHAEMIA
     Route: 048
     Dates: start: 20090310, end: 20090407
  2. ASPIRIN [Concomitant]
     Route: 065
     Dates: start: 20090317
  3. CALCIUM (UNSPECIFIED) AND VITAMIN D (UNSPECIFIED) [Concomitant]
     Route: 065
     Dates: start: 20040708
  4. CLOBETASONE BUTYRATE [Concomitant]
     Route: 065
     Dates: start: 20090327
  5. DIPYRIDAMOLE [Concomitant]
     Route: 065
     Dates: start: 20090310
  6. DOCUSATE SODIUM [Concomitant]
     Route: 065
     Dates: start: 20080115
  7. HYDROCORTISONE [Concomitant]
     Indication: SKIN DISORDER
     Route: 061
     Dates: start: 20090331, end: 20090406
  8. ISOPROPYL MYRISTATE [Concomitant]
     Route: 065
     Dates: start: 20060731
  9. PSYLLIUM HUSK [Concomitant]
     Route: 065
     Dates: start: 20080115
  10. LORATADINE [Concomitant]
     Route: 065
     Dates: start: 20080306
  11. OMEPRAZOLE [Concomitant]
     Route: 065
     Dates: start: 20080328
  12. MINERAL OIL [Concomitant]
     Route: 065
     Dates: start: 20060731

REACTIONS (2)
  - ERYTHEMA MULTIFORME [None]
  - GOUT [None]
